FAERS Safety Report 5169739-7 (Version None)
Quarter: 2006Q4

REPORT INFORMATION
  Report Type: 
  Country: None (occurrence: None)
  Receive Date: 20061212
  Receipt Date: 20061130
  Transmission Date: 20070319
  Serious: Yes (Hospitalization)
  Sender: FDA-Public Use
  Company Number: PHEH2006US14774

PATIENT
  Age: 72 Year
  Sex: Female
  Weight: 45.26 kg

DRUGS (3)
  1. ZOMETA [Suspect]
     Indication: MULTIPLE MYELOMA
  2. VELCADE [Suspect]
  3. ARANESP [Concomitant]
     Indication: ANAEMIA
     Dosage: 200 MCG ONCE
     Route: 058
     Dates: start: 20061020

REACTIONS (2)
  - ANAEMIA [None]
  - HYPONATRAEMIA [None]
